FAERS Safety Report 6570824-3 (Version None)
Quarter: 2010Q1

REPORT INFORMATION
  Report Type: 
  Country: None (occurrence: None)
  Receive Date: 20100204
  Receipt Date: 20100127
  Transmission Date: 20100710
  Serious: Yes (Other)
  Sender: FDA-Public Use
  Company Number: FR-JNJFOC-20100200113

PATIENT
  Sex: Male
  Weight: 57 kg

DRUGS (2)
  1. EPITOMAX [Suspect]
     Indication: MIGRAINE
     Route: 048
     Dates: start: 20090601, end: 20090701
  2. EPITOMAX [Suspect]
     Indication: EPILEPSY
     Route: 048
     Dates: start: 20090601, end: 20090701

REACTIONS (4)
  - DECREASED APPETITE [None]
  - MALNUTRITION [None]
  - NERVOUSNESS [None]
  - WEIGHT DECREASED [None]
